FAERS Safety Report 6793096-3 (Version None)
Quarter: 2010Q2

REPORT INFORMATION
  Report Type: 
  Country: None (occurrence: None)
  Receive Date: 20100624
  Receipt Date: 20090701
  Transmission Date: 20101027
  Serious: Yes (Other)
  Sender: FDA-Public Use
  Company Number: US-MYLANLABS-2009S1005319

PATIENT
  Age: 44 Year
  Sex: Female
  Weight: 81.65 kg

DRUGS (9)
  1. CLOZAPINE [Suspect]
     Indication: SCHIZOAFFECTIVE DISORDER
     Route: 048
     Dates: start: 20081204, end: 20090324
  2. ZYPREXA [Concomitant]
     Dates: start: 20081201
  3. PROPRANOLOL [Concomitant]
  4. LORAZEPAM [Concomitant]
  5. CLONAZEPAM [Concomitant]
  6. CYMBALTA [Concomitant]
  7. DIAZEPAM [Concomitant]
  8. ABILIFY [Concomitant]
  9. LEVETIRACETAM [Concomitant]

REACTIONS (1)
  - GRANULOCYTOPENIA [None]
